FAERS Safety Report 25617211 (Version 1)
Quarter: 2025Q3

REPORT INFORMATION
  Report Type: Spontaneous
  Country: JP (occurrence: JP)
  Receive Date: 20250729
  Receipt Date: 20250729
  Transmission Date: 20251021
  Serious: Yes (Other)
  Sender: MERCK SHARP & DOHME LLC
  Company Number: JP-009507513-2313148

PATIENT
  Age: 6 Decade
  Sex: Male

DRUGS (5)
  1. KEYTRUDA [Suspect]
     Active Substance: PEMBROLIZUMAB
     Indication: Non-small cell lung cancer
     Route: 041
     Dates: start: 202507
  2. CISPLATIN [Suspect]
     Active Substance: CISPLATIN
     Route: 065
  3. CISPLATIN [Suspect]
     Active Substance: CISPLATIN
     Route: 065
  4. GEMCITABINE [Suspect]
     Active Substance: GEMCITABINE
     Route: 065
  5. GEMCITABINE [Suspect]
     Active Substance: GEMCITABINE
     Route: 065

REACTIONS (1)
  - Renal impairment [Unknown]

NARRATIVE: CASE EVENT DATE: 20250701
